FAERS Safety Report 10274426 (Version 1)
Quarter: 2014Q3

REPORT INFORMATION
  Report Type: Report from Study
  Country: US (occurrence: US)
  Receive Date: 20140702
  Receipt Date: 20140702
  Transmission Date: 20150326
  Serious: Yes (Death)
  Sender: FDA-Public Use
  Company Number: US-SA-2014SA084105

PATIENT
  Age: 62 Year
  Sex: Female

DRUGS (1)
  1. RENVELA [Suspect]
     Active Substance: SEVELAMER CARBONATE
     Indication: RENAL FAILURE CHRONIC
     Dosage: 800 MG TABLETS; 2 TABLETS THREE TIMES A DAY WITH MEALS AND 2 ?TABLETS TWICE A DAY WITH SNACKS.
     Route: 048
     Dates: start: 20130626, end: 20140521

REACTIONS (1)
  - Death [Fatal]

NARRATIVE: CASE EVENT DATE: 20140521
